FAERS Safety Report 5810960-X (Version None)
Quarter: 2008Q3

REPORT INFORMATION
  Report Type: 
  Country: None (occurrence: None)
  Receive Date: 20080716
  Receipt Date: 20080708
  Transmission Date: 20090109
  Serious: Yes (Hospitalization, Other)
  Sender: FDA-Public Use
  Company Number: PHHY2008JP09757

PATIENT
  Age: 46 Year
  Sex: Female

DRUGS (8)
  1. TEGRETOL [Suspect]
     Indication: DEPRESSION
     Dosage: UNK
  2. LITHIUM CARBONATE [Concomitant]
     Indication: DEPRESSION
     Dosage: UNK
     Dates: start: 20070501
  3. FLUNITRAZEPAM [Concomitant]
     Dosage: UNK
     Dates: start: 20070501
  4. TRAZODONE HCL [Concomitant]
  5. CLOXAZOLAM [Concomitant]
     Dosage: UNK
     Dates: start: 20070501
  6. AMITRIPTYLINE HCL [Concomitant]
     Indication: DEPRESSION
     Dosage: UNK
     Dates: start: 20070501
  7. PREDNISOLONE [Concomitant]
     Dosage: UNK
  8. GLYCYRRHIZINATE POTASSIUM [Concomitant]
     Dosage: UNK

REACTIONS (13)
  - ACUTE HEPATIC FAILURE [None]
  - ASPARTATE AMINOTRANSFERASE INCREASED [None]
  - BIOPSY SKIN [None]
  - BLOOD IMMUNOGLOBULIN G INCREASED [None]
  - DISSEMINATED INTRAVASCULAR COAGULATION [None]
  - DRUG ERUPTION [None]
  - DRUG RASH WITH EOSINOPHILIA AND SYSTEMIC SYMPTOMS [None]
  - GENERALISED ERYTHEMA [None]
  - HEPATIC FUNCTION ABNORMAL [None]
  - LYMPHADENOPATHY [None]
  - PLATELET COUNT DECREASED [None]
  - PYREXIA [None]
  - RASH [None]
